FAERS Safety Report 8802698 (Version 1)
Quarter: 2012Q4

REPORT INFORMATION
  Report Type: 
  Country: US (occurrence: US)
  Receive Date: 20120921
  Receipt Date: 20120921
  Transmission Date: 20130627
  Serious: Yes (Hospitalization, Other)
  Sender: FDA-Public Use
  Company Number: US-009507513-2012SP006318

PATIENT
  Age: 69 Year
  Sex: Female
  Weight: 68.4 kg

DRUGS (8)
  1. MIRALAX [Suspect]
     Indication: BOWEL PREPARATION
     Dosage: 8oz every 10-15 minutes on 25-JAN-2011
     Route: 048
     Dates: start: 20110125, end: 20110125
  2. AVAPRO [Concomitant]
     Indication: HYPERTENSION
     Dosage: 150 mg, UNK
  3. PULMICORT [Concomitant]
     Indication: ASTHMA
     Dosage: 90 ?g, BID
  4. SINGULAIR [Concomitant]
     Dosage: 10 mg, UNK
     Route: 048
  5. XOPENEX [Concomitant]
     Dosage: UNK UNK, PRN
  6. SIMVASTATIN [Concomitant]
     Indication: BLOOD TRIGLYCERIDES INCREASED
     Dosage: 20 mg, UNK
  7. ASPIRIN [Concomitant]
     Indication: MIGRAINE
     Dosage: 325 mg, UNK
  8. TRAVATAN [Concomitant]
     Indication: GLAUCOMA
     Dosage: .0004 %, UNK

REACTIONS (10)
  - Dehydration [Unknown]
  - Blood sodium decreased [Unknown]
  - Blood magnesium decreased [Unknown]
  - Urine output decreased [Recovering/Resolving]
  - Urinary tract infection [Unknown]
  - Dizziness [Unknown]
  - Nausea [Unknown]
  - Vomiting [Recovering/Resolving]
  - Diarrhoea [Recovering/Resolving]
  - Off label use [Unknown]
